FAERS Safety Report 10531710 (Version 1)
Quarter: 2014Q4

REPORT INFORMATION
  Report Type: Report from Study
  Country: US (occurrence: US)
  Receive Date: 20141021
  Receipt Date: 20141021
  Transmission Date: 20150529
  Serious: Yes (Other)
  Sender: FDA-Public Use
  Company Number: US-SA-2014SA142443

PATIENT
  Age: 54 Year
  Sex: Female

DRUGS (2)
  1. LANTUS SOLOSTAR [Suspect]
     Active Substance: INSULIN GLARGINE
     Indication: DIABETES MELLITUS
     Dosage: DOSE:40 UNIT(S)
     Route: 065
  2. ORAL ANTIDIABETICS [Concomitant]
     Active Substance: UNSPECIFIED INGREDIENT

REACTIONS (8)
  - Stress [Unknown]
  - Depression [Unknown]
  - Arthritis [Unknown]
  - Walking aid user [Unknown]
  - Glycosylated haemoglobin increased [Unknown]
  - Joint injury [Unknown]
  - Blood cholesterol increased [Unknown]
  - Injection site haemorrhage [Unknown]
